FAERS Safety Report 19353201 (Version 6)
Quarter: 2022Q1

REPORT INFORMATION
  Report Type: Report from Study
  Country: US (occurrence: US)
  Receive Date: 20210531
  Receipt Date: 20220121
  Transmission Date: 20220424
  Serious: Yes (Death, Hospitalization)
  Sender: FDA-Public Use
  Company Number: NVSC2021US115535

PATIENT
  Age: 57 Year
  Sex: Male

DRUGS (7)
  1. TREPROSTINIL [Suspect]
     Active Substance: TREPROSTINIL
     Indication: Pulmonary arterial hypertension
     Dosage: 53 NG/KG/MIN, CONT
     Route: 042
     Dates: start: 201902
  2. TREPROSTINIL [Suspect]
     Active Substance: TREPROSTINIL
     Dosage: 53 NG/KG/MIN, CONT
     Route: 042
     Dates: start: 20200416
  3. TREPROSTINIL [Suspect]
     Active Substance: TREPROSTINIL
     Dosage: 46 MG/KG/MIN CONT
     Route: 042
     Dates: start: 202012
  4. TREPROSTINIL [Suspect]
     Active Substance: TREPROSTINIL
     Dosage: 53 NG/KG/MIN, CONT
     Route: 042
     Dates: start: 20210518
  5. TREPROSTINIL [Suspect]
     Active Substance: TREPROSTINIL
     Dosage: 54 NG/KG/MIN, CONT
     Route: 042
  6. TREPROSTINIL [Suspect]
     Active Substance: TREPROSTINIL
     Dosage: 53 NG/KG/MIN, CONT
     Route: 042
     Dates: start: 20210926
  7. TREPROSTINIL [Suspect]
     Active Substance: TREPROSTINIL
     Dosage: 53 NG/KG/MIN, CONT
     Route: 042

REACTIONS (8)
  - Death [Fatal]
  - Hypervolaemia [Unknown]
  - Joint dislocation [Unknown]
  - Fall [Unknown]
  - Infection [Unknown]
  - Product availability issue [Unknown]
  - Abdominal pain [Unknown]
  - Product use issue [Unknown]

NARRATIVE: CASE EVENT DATE: 20210520
